FAERS Safety Report 7405141 (Version 3)
Quarter: 2015Q4

REPORT INFORMATION
  Report Type: Spontaneous
  Country: US (occurrence: US)
  Receive Date: 20100601
  Receipt Date: 20151228
  Transmission Date: 20160305
  Serious: Yes (Hospitalization)
  Sender: FDA-Public Use
  Company Number: US-BAYER-201023574NA

PATIENT
  Age: 23 Year
  Sex: Female
  Weight: 58.96 kg

DRUGS (13)
  1. CLARITIN [Concomitant]
     Active Substance: LORATADINE
     Indication: MULTIPLE ALLERGIES
  2. METHYLPREDNISOLONE. [Concomitant]
     Active Substance: METHYLPREDNISOLONE
     Dosage: UNK
  3. CLONAZEPAM. [Concomitant]
     Active Substance: CLONAZEPAM
  4. K-DUR [Concomitant]
     Active Substance: POTASSIUM CHLORIDE
  5. BETAMETHASONE [BETAMETHASONE] [Concomitant]
     Active Substance: BETAMETHASONE
     Indication: PSORIASIS
  6. PREDNISONE. [Concomitant]
     Active Substance: PREDNISONE
     Indication: VASCULITIS
  7. DIFFERIN [Concomitant]
     Active Substance: ADAPALENE
     Indication: ACNE
  8. CLONAZEPAM. [Concomitant]
     Active Substance: CLONAZEPAM
  9. YASMIN [Suspect]
     Active Substance: DROSPIRENONE\ETHINYL ESTRADIOL
     Dosage: UNK UNK, QD
     Route: 048
     Dates: start: 20050425, end: 20050523
  10. AZITHROMYCIN [Concomitant]
     Active Substance: AZITHROMYCIN ANHYDROUS
     Indication: ANTIBIOTIC THERAPY
  11. VICODIN [Concomitant]
     Active Substance: ACETAMINOPHEN\HYDROCODONE BITARTRATE
     Indication: MYALGIA
  12. ORTHO TRI CYCLEN [Concomitant]
     Active Substance: ETHINYL ESTRADIOL\NORGESTIMATE
  13. ZYRTEC [CETIRIZINE HYDROCHLORIDE] [Concomitant]
     Indication: MULTIPLE ALLERGIES

REACTIONS (11)
  - Headache [Unknown]
  - Cerebrovascular accident [Unknown]
  - Neck pain [Unknown]
  - Migraine [Unknown]
  - Depression [None]
  - Back pain [None]
  - Cognitive disorder [Unknown]
  - Hemiparesis [Unknown]
  - Arthralgia [None]
  - Mental disorder [None]
  - Anxiety [None]

NARRATIVE: CASE EVENT DATE: 20050523
